FAERS Safety Report 20973227 (Version 1)
Quarter: 2022Q2

REPORT INFORMATION
  Report Type: Spontaneous
  Country: TR (occurrence: None)
  Receive Date: 20220617
  Receipt Date: 20220617
  Transmission Date: 20220721
  Serious: Yes (Other)
  Sender: FDA-Public Use
  Company Number: Unknown

PATIENT
  Age: 65 Year
  Sex: Male

DRUGS (1)
  1. CARBAMAZEPINE [Suspect]
     Active Substance: CARBAMAZEPINE
     Indication: Epilepsy
     Dosage: 3X200MG
     Route: 065

REACTIONS (1)
  - Acute lymphocytic leukaemia [Unknown]
